FAERS Safety Report 5137089-0 (Version None)
Quarter: 2006Q4

REPORT INFORMATION
  Report Type: 
  Country: None (occurrence: None)
  Receive Date: 20061030
  Receipt Date: 20061017
  Transmission Date: 20070319
  Serious: Yes (Other)
  Sender: FDA-Public Use
  Company Number: PHBS2006GB16236

PATIENT
  Age: 68 Year
  Sex: Female

DRUGS (3)
  1. CLODRONATE DISODIUM [Concomitant]
     Route: 065
  2. CYCLOPHOSPHAMIDE [Concomitant]
     Route: 065
  3. ZOLEDRONIC ACID [Suspect]
     Indication: MULTIPLE MYELOMA
     Route: 042

REACTIONS (7)
  - BONE DISORDER [None]
  - BONE LESION [None]
  - IMPAIRED HEALING [None]
  - OSTEONECROSIS [None]
  - PAIN IN JAW [None]
  - POOR PERSONAL HYGIENE [None]
  - WOUND DEBRIDEMENT [None]
